FAERS Safety Report 19053216 (Version 1)
Quarter: 2021Q1

REPORT INFORMATION
  Report Type: Spontaneous
  Country: CN (occurrence: CN)
  Receive Date: 20210324
  Receipt Date: 20210324
  Transmission Date: 20210420
  Serious: Yes (Hospitalization)
  Sender: FDA-Public Use
  Company Number: CN-ELI_LILLY_AND_COMPANY-CN202103007082

PATIENT
  Age: 49 Year
  Sex: Female
  Weight: 80 kg

DRUGS (5)
  1. HUMALOG MIX75/25 [Suspect]
     Active Substance: INSULIN LISPRO
     Dosage: 22 U, EACH MORNING
     Route: 058
  2. HUMALOG MIX75/25 [Suspect]
     Active Substance: INSULIN LISPRO
     Indication: DIABETES MELLITUS
     Dosage: 32 U, EACH MORNING
     Route: 058
     Dates: start: 2012
  3. HUMALOG MIX75/25 [Suspect]
     Active Substance: INSULIN LISPRO
     Dosage: 10 U, DAILY (NOON)
     Route: 058
  4. HUMALOG MIX75/25 [Suspect]
     Active Substance: INSULIN LISPRO
     Dosage: 30 U, DAILY (NIGHT)
     Route: 058
     Dates: start: 2012
  5. HUMALOG MIX75/25 [Suspect]
     Active Substance: INSULIN LISPRO
     Dosage: 26 U, DAILY (NIGHT)
     Route: 058

REACTIONS (7)
  - Pharyngitis [Unknown]
  - Limb injury [Recovering/Resolving]
  - Peripheral swelling [Unknown]
  - Inflammation of wound [Unknown]
  - Hypertension [Unknown]
  - Blood glucose increased [Unknown]
  - Wrong technique in product usage process [Unknown]

NARRATIVE: CASE EVENT DATE: 2015
